FAERS Safety Report 16098777 (Version 1)
Quarter: 2019Q1

REPORT INFORMATION
  Report Type: Spontaneous
  Country: US (occurrence: US)
  Receive Date: 20190321
  Receipt Date: 20190321
  Transmission Date: 20190418
  Serious: Yes (Other)
  Sender: FDA-Public Use
  Company Number: US-DRREDDYS-USA/USA/19/0108826

PATIENT
  Age: 57 Year
  Sex: Male

DRUGS (2)
  1. IMATINIB MESYLATE TABLETS [Suspect]
     Active Substance: IMATINIB MESYLATE
     Indication: GASTROINTESTINAL STROMAL TUMOUR
  2. IMATINIB MESYLATE TABLETS [Suspect]
     Active Substance: IMATINIB MESYLATE

REACTIONS (4)
  - Dizziness [Unknown]
  - Diarrhoea [Unknown]
  - Mouth ulceration [Unknown]
  - Haemorrhage [Unknown]
